FAERS Safety Report 6133389-6 (Version None)
Quarter: 2009Q1

REPORT INFORMATION
  Report Type: 
  Country: None (occurrence: None)
  Receive Date: 20090324
  Receipt Date: 20090324
  Transmission Date: 20090719
  Serious: No
  Sender: FDA-Public Use
  Company Number: None

PATIENT
  Age: 64 Year
  Sex: Male
  Weight: 97.5234 kg

DRUGS (2)
  1. NOHIST-EXT CAPLET NOT ON PRODUCT LABEL LARKE [Suspect]
     Indication: POSTNASAL DRIP
     Dosage: 1/2 TO 1 TABLET 1OR TWICE- DAILY BUCCAL; 1/2 TO 1 TABLET 1 OR TWICE DAILY
     Route: 002
     Dates: start: 20080715, end: 20081010
  2. NOHIST-EXT CAPLET NOT ON PRODUCT LABEL LARKE [Suspect]
     Indication: POSTNASAL DRIP
     Dosage: 1/2 TO 1 TABLET 1OR TWICE- DAILY BUCCAL; 1/2 TO 1 TABLET 1 OR TWICE DAILY
     Route: 002
     Dates: start: 20090105, end: 20090317

REACTIONS (4)
  - ABDOMINAL DISCOMFORT [None]
  - DERMATITIS CONTACT [None]
  - GASTRITIS [None]
  - GASTROINTESTINAL ULCER [None]
